FAERS Safety Report 6506568-3 (Version None)
Quarter: 2009Q4

REPORT INFORMATION
  Report Type: 
  Country: None (occurrence: None)
  Receive Date: 20091221
  Receipt Date: 20091209
  Transmission Date: 20100525
  Serious: Yes (Hospitalization)
  Sender: FDA-Public Use
  Company Number: FR-BRISTOL-MYERS SQUIBB COMPANY-14895551

PATIENT
  Age: 84 Year
  Sex: Male

DRUGS (10)
  1. CARBIDOPA + LEVODOPA [Suspect]
     Indication: PARKINSON'S DISEASE
     Dosage: UNK-05OCT09:10-10MG/D 06OCT09-18OCT09:250/25/D:13 DAYS (DOSE INCREASED) 1DF=250-25MG/D
     Route: 048
     Dates: end: 20091018
  2. CARBIDOPA + LEVODOPA CR [Suspect]
     Indication: PARKINSON'S DISEASE
     Dosage: 1 DF=5-200MG/QID TABS
     Route: 048
     Dates: start: 20040101
  3. LYSINE ASPIRIN [Concomitant]
  4. CANDESARTAN CILEXETIL [Concomitant]
     Dates: end: 20091018
  5. INSULIN ASPART [Concomitant]
  6. MINERAL OIL [Concomitant]
     Dates: end: 20091018
  7. PLANTAGO SEED [Concomitant]
     Dates: end: 20091018
  8. SORBIT [Concomitant]
     Dates: end: 20091018
  9. POLYETHYLENE GLYCOL 4000 [Concomitant]
     Dates: end: 20091018
  10. RAMIPRIL [Concomitant]

REACTIONS (2)
  - CARDIAC FAILURE [None]
  - NODAL ARRHYTHMIA [None]
